FAERS Safety Report 6272201-1 (Version None)
Quarter: 2009Q3

REPORT INFORMATION
  Report Type: 
  Country: None (occurrence: None)
  Receive Date: 20090717
  Receipt Date: 20090707
  Transmission Date: 20100115
  Serious: Yes (Death)
  Sender: FDA-Public Use
  Company Number: JP-JNJFOC-20090702198

PATIENT
  Sex: Female

DRUGS (14)
  1. DUROTEP MT [Suspect]
     Route: 062
  2. DUROTEP MT [Suspect]
     Route: 062
  3. DUROTEP MT [Suspect]
     Route: 062
  4. DUROTEP MT [Suspect]
     Route: 062
  5. DUROTEP MT [Suspect]
     Route: 062
  6. DUROTEP MT [Suspect]
     Indication: CANCER PAIN
     Route: 062
  7. OXYCONTIN [Concomitant]
     Indication: CANCER PAIN
     Route: 048
  8. MORPHINE HYDROCHLORIDE [Concomitant]
     Indication: ANALGESIC THERAPY
     Route: 042
  9. TEGRETOL [Concomitant]
     Route: 048
  10. GABAPEN [Concomitant]
     Route: 048
  11. GOSHA-JINKI-GAN [Concomitant]
     Route: 048
  12. MYSLEE [Concomitant]
     Route: 048
  13. SHIMOTSU-TO [Concomitant]
     Route: 048
  14. PACLITAXEL [Concomitant]
     Dosage: 210 UNSPECIFIED UNITS
     Route: 042

REACTIONS (2)
  - BREAST CANCER RECURRENT [None]
  - DRUG PRESCRIBING ERROR [None]
